FAERS Safety Report 25883118 (Version 2)
Quarter: 2025Q4

REPORT INFORMATION
  Report Type: Spontaneous
  Country: US (occurrence: US)
  Receive Date: 20251006
  Receipt Date: 20251023
  Transmission Date: 20260118
  Serious: No
  Sender: ROCHE
  Company Number: US-ROCHE-10000402565

PATIENT
  Sex: Female

DRUGS (3)
  1. XOLAIR PFS [Suspect]
     Active Substance: OMALIZUMAB
     Indication: Asthma
     Dosage: STRENGTH: 75 MG/0.5ML
     Route: 058
     Dates: start: 20250307
  2. XOLAIR PFS [Suspect]
     Active Substance: OMALIZUMAB
     Dosage: STRENGTH: 150MG/ML
     Route: 058
     Dates: start: 20250307
  3. PREDNISONE [Concomitant]
     Active Substance: PREDNISONE

REACTIONS (2)
  - Asthma [Recovering/Resolving]
  - COVID-19 [Recovering/Resolving]
